FAERS Safety Report 19937535 (Version 2)
Quarter: 2021Q4

REPORT INFORMATION
  Report Type: Spontaneous
  Country: None (occurrence: GB)
  Receive Date: 20211011
  Receipt Date: 20211125
  Transmission Date: 20220303
  Serious: Yes (Other)
  Sender: FDA-Public Use
  Company Number: GB-ASCEND THERAPEUTICS US, LLC-2120382

PATIENT
  Age: 47 Year
  Sex: Female
  Weight: 98 kg

DRUGS (8)
  1. ESTROGEL [Suspect]
     Active Substance: ESTRADIOL
     Indication: Hormone replacement therapy
     Route: 061
     Dates: start: 20210801
  2. ESTROGEL [Suspect]
     Active Substance: ESTRADIOL
  3. ESTRADIOL [Suspect]
     Active Substance: ESTRADIOL
     Route: 061
     Dates: start: 20210801
  4. CERAZETTE(DESOGESTREL) [Concomitant]
     Route: 065
  5. INOSITOL NIACINATE(INOSITOL NICOTINATE) [Concomitant]
     Route: 065
  6. METFORMIN [Concomitant]
     Active Substance: METFORMIN HYDROCHLORIDE
     Route: 065
  7. PROVERA(MEDROXYPROGESTERONE ACETATE) [Concomitant]
     Route: 065
  8. THYROXINE(LEVOTHYROXINE SODIUM) [Concomitant]
     Route: 065

REACTIONS (7)
  - Anxiety [Not Recovered/Not Resolved]
  - Stress [Not Recovered/Not Resolved]
  - Hyperhidrosis [Not Recovered/Not Resolved]
  - Abdominal distension [Not Recovered/Not Resolved]
  - Medication error [Unknown]
  - Menopausal symptoms [Unknown]
  - Drug ineffective [Unknown]

NARRATIVE: CASE EVENT DATE: 20210801
